FAERS Safety Report 8489404-8 (Version None)
Quarter: 2012Q3

REPORT INFORMATION
  Report Type: 
  Country: None (occurrence: None)
  Receive Date: 20120705
  Receipt Date: 20120625
  Transmission Date: 20120928
  Serious: Yes (Other)
  Sender: FDA-Public Use
  Company Number: US-ELI_LILLY_AND_COMPANY-US201106001589

PATIENT
  Sex: Female

DRUGS (6)
  1. FORTEO [Suspect]
     Indication: LOWER LIMB FRACTURE
     Dosage: 20 UG, QD
     Route: 065
     Dates: start: 20110505
  2. CALCIUM [Concomitant]
  3. FORTEO [Suspect]
     Dosage: 20 UG, QD
     Route: 065
  4. FORTEO [Suspect]
     Dosage: 20 UG, QD
     Route: 065
  5. FORTEO [Suspect]
     Dosage: 20 UG, QD
     Route: 065
  6. FORTEO [Suspect]
     Dosage: 20 UG, QD

REACTIONS (6)
  - HEART RATE INCREASED [None]
  - MUSCLE SPASMS [None]
  - OFF LABEL USE [None]
  - BONE DISORDER [None]
  - BLOOD CALCIUM INCREASED [None]
  - DIZZINESS POSTURAL [None]
